FAERS Safety Report 24051897 (Version 1)
Quarter: 2024Q3

REPORT INFORMATION
  Report Type: Report from Study
  Country: GB (occurrence: None)
  Receive Date: 20240704
  Receipt Date: 20240704
  Transmission Date: 20241017
  Serious: Yes (Hospitalization, Other)
  Sender: ASTRAZENECA
  Company Number: 2024A147976

PATIENT
  Sex: Male

DRUGS (1)
  1. TEZSPIRE [Suspect]
     Active Substance: TEZEPELUMAB-EKKO
     Indication: Asthma
     Route: 058
     Dates: start: 202403

REACTIONS (4)
  - Fall [Recovering/Resolving]
  - Pneumonia [Recovering/Resolving]
  - Kidney infection [Recovering/Resolving]
  - Product dose omission issue [Recovering/Resolving]
